FAERS Safety Report 14690389 (Version 1)
Quarter: 2018Q1

REPORT INFORMATION
  Report Type: Spontaneous
  Country: US (occurrence: US)
  Receive Date: 20180328
  Receipt Date: 20180328
  Transmission Date: 20180509
  Serious: Yes (Other)
  Sender: FDA-Public Use
  Company Number: US-BAYER-2018-054240

PATIENT
  Age: 55 Year
  Sex: Female
  Weight: 63.99 kg

DRUGS (3)
  1. GABAPENTIN. [Concomitant]
     Active Substance: GABAPENTIN
     Dosage: UNK
  2. ALEVE [Suspect]
     Active Substance: NAPROXEN SODIUM
     Indication: PAIN
     Dosage: 4 DF, UNK
     Route: 048
     Dates: start: 20180317
  3. DILANTIN [Concomitant]
     Active Substance: PHENYTOIN
     Dosage: UNK

REACTIONS (8)
  - Incorrect dosage administered [Unknown]
  - Seizure [Recovered/Resolved]
  - Middle insomnia [Unknown]
  - Dizziness postural [Unknown]
  - Product container seal issue [Unknown]
  - Hunger [Unknown]
  - Drug ineffective [Unknown]
  - Product physical issue [None]

NARRATIVE: CASE EVENT DATE: 20180317
